FAERS Safety Report 20676967 (Version 1)
Quarter: 2022Q2

REPORT INFORMATION
  Report Type: Other
  Country: US (occurrence: None)
  Receive Date: 20220406
  Receipt Date: 20220406
  Transmission Date: 20220721
  Serious: No
  Sender: FDA-Public Use
  Company Number: US-ROCHE-3066294

PATIENT
  Age: 43 Year
  Sex: Female
  Weight: 77.180 kg

DRUGS (3)
  1. OCREVUS [Suspect]
     Active Substance: OCRELIZUMAB
     Indication: Multiple sclerosis
     Dosage: INITIALLY INFUSE 300MG DAY 1, THEN 300MG DAY 15; DATE OF TREATMENT: 19/APR/2021, 09/NOV/2021, 03/MAY
     Route: 042
     Dates: start: 202105
  2. TYLENOL [Concomitant]
     Active Substance: ACETAMINOPHEN
  3. CARBOHYDRATES\ELECTROLYTES NOS\VITAMINS [Concomitant]
     Active Substance: CARBOHYDRATES\ELECTROLYTES NOS\VITAMINS

REACTIONS (2)
  - Influenza [Not Recovered/Not Resolved]
  - Renal pain [Recovered/Resolved]

NARRATIVE: CASE EVENT DATE: 20220328
